FAERS Safety Report 16213112 (Version 2)
Quarter: 2019Q2

REPORT INFORMATION
  Report Type: Spontaneous
  Country: US (occurrence: US)
  Receive Date: 20190418
  Receipt Date: 20190529
  Transmission Date: 20190711
  Serious: Yes (Other)
  Sender: FDA-Public Use
  Company Number: US-BTG-201900061

PATIENT
  Age: 78 Year
  Sex: Female

DRUGS (1)
  1. DIGIFAB [Suspect]
     Active Substance: OVINE DIGOXIN IMMUNE FAB
     Indication: TOXICITY TO VARIOUS AGENTS
     Route: 065
     Dates: start: 20190322

REACTIONS (3)
  - Drug ineffective [Unknown]
  - Drug level fluctuating [Unknown]
  - Bradycardia [Not Recovered/Not Resolved]
